FAERS Safety Report 7602874-X (Version None)
Quarter: 2011Q3

REPORT INFORMATION
  Report Type: 
  Country: None (occurrence: None)
  Receive Date: 20110712
  Receipt Date: 20110629
  Transmission Date: 20111222
  Serious: Yes (Other)
  Sender: FDA-Public Use
  Company Number: US-JNJFOC-20110702600

PATIENT
  Age: 81 Year
  Sex: Female
  Weight: 65.77 kg

DRUGS (2)
  1. TYLENOL-500 [Suspect]
     Indication: ARTHRALGIA
     Route: 048
  2. TYLENOL-500 [Suspect]
     Route: 048

REACTIONS (4)
  - RECTAL HAEMORRHAGE [None]
  - BURNING SENSATION [None]
  - PRODUCT QUALITY ISSUE [None]
  - FLATULENCE [None]
